FAERS Safety Report 18092389 (Version 1)
Quarter: 2020Q3

REPORT INFORMATION
  Report Type: Spontaneous
  Country: US (occurrence: US)
  Receive Date: 20200730
  Receipt Date: 20200730
  Transmission Date: 20201103
  Serious: Yes (Death)
  Sender: FDA-Public Use
  Company Number: None

PATIENT
  Age: 69 Year
  Sex: Female
  Weight: 120 kg

DRUGS (16)
  1. LORAZEPMA [Concomitant]
     Dates: start: 20200729
  2. INSULIN [Concomitant]
     Active Substance: INSULIN NOS
     Dates: start: 20200727
  3. METOPROLOL. [Concomitant]
     Active Substance: METOPROLOL
     Dates: start: 20200728, end: 20200729
  4. DILTIAZEM. [Concomitant]
     Active Substance: DILTIAZEM
     Dates: start: 20200727, end: 20200728
  5. FUROSEMIDE. [Concomitant]
     Active Substance: FUROSEMIDE
     Dates: start: 20200729, end: 20200729
  6. ENOXAPARIN [Concomitant]
     Active Substance: ENOXAPARIN
     Dates: start: 20200727, end: 20200729
  7. DOCUSATE [Concomitant]
     Active Substance: DOCUSATE
     Dates: start: 20200727, end: 20200727
  8. ACETAMINOPHEN. [Concomitant]
     Active Substance: ACETAMINOPHEN
     Dates: start: 20200727
  9. DEXAMETHASONE. [Concomitant]
     Active Substance: DEXAMETHASONE
     Dates: start: 20200729
  10. MORPHINE [Concomitant]
     Active Substance: MORPHINE
     Dates: start: 20200728
  11. KETOROLAC [Concomitant]
     Active Substance: KETOROLAC TROMETHAMINE
     Dates: start: 20200727, end: 20200727
  12. FAMOTIDINE. [Concomitant]
     Active Substance: FAMOTIDINE
     Dates: start: 20200727
  13. REMDESIVIR. [Suspect]
     Active Substance: REMDESIVIR
     Indication: COVID-19
     Route: 042
     Dates: start: 20200728, end: 20200729
  14. OMEPRAZOLE. [Concomitant]
     Active Substance: OMEPRAZOLE
     Dates: start: 20200727, end: 20200727
  15. SENNA [Concomitant]
     Active Substance: SENNA LEAF\SENNOSIDES\SENNOSIDES A AND B
     Dates: start: 20200727
  16. DEXAMETHASONE. [Concomitant]
     Active Substance: DEXAMETHASONE
     Dates: start: 20200726

REACTIONS (2)
  - Cardiac arrest [None]
  - Hypoxia [None]

NARRATIVE: CASE EVENT DATE: 20200729
